FAERS Safety Report 7092278-3 (Version None)
Quarter: 2010Q4

REPORT INFORMATION
  Report Type: 
  Country: None (occurrence: None)
  Receive Date: 20101109
  Receipt Date: 20101102
  Transmission Date: 20110411
  Serious: Yes (Hospitalization, Disabling)
  Sender: FDA-Public Use
  Company Number: US-MERCK-1011USA00404

PATIENT
  Age: 65 Year
  Sex: Female

DRUGS (3)
  1. FOSAMAX [Suspect]
     Indication: OSTEOPENIA
     Route: 048
     Dates: start: 20050101, end: 20080101
  2. BONIVA [Suspect]
     Route: 065
     Dates: start: 20080101, end: 20080901
  3. ALENDRONATE SODIUM [Suspect]
     Route: 065
     Dates: start: 20080901

REACTIONS (11)
  - ASTHENIA [None]
  - BONE DENSITY DECREASED [None]
  - EMOTIONAL DISTRESS [None]
  - FEMUR FRACTURE [None]
  - FOOT FRACTURE [None]
  - GAIT DISTURBANCE [None]
  - IMPAIRED HEALING [None]
  - MENTAL DISORDER [None]
  - PAIN [None]
  - PAIN IN EXTREMITY [None]
  - STRESS FRACTURE [None]
